FAERS Safety Report 13988277 (Version 1)
Quarter: 2017Q3

REPORT INFORMATION
  Report Type: Spontaneous
  Country: FR (occurrence: FR)
  Receive Date: 20170919
  Receipt Date: 20170919
  Transmission Date: 20171128
  Serious: Yes (Hospitalization)
  Sender: FDA-Public Use
  Company Number: FR-INDIVIOR LIMITED-INDV-104576-2017

PATIENT
  Sex: Male

DRUGS (4)
  1. CANNABIS [Suspect]
     Active Substance: CANNABIS SATIVA SUBSP. INDICA TOP
     Indication: PRODUCT USED FOR UNKNOWN INDICATION
     Dosage: 4 JOINTS/DAY
     Route: 065
  2. ALCOHOL. [Suspect]
     Active Substance: ALCOHOL
     Indication: PRODUCT USED FOR UNKNOWN INDICATION
     Dosage: UNK
     Route: 065
  3. SUBUTEX [Suspect]
     Active Substance: BUPRENORPHINE HYDROCHLORIDE
     Indication: PRODUCT USED FOR UNKNOWN INDICATION
     Dosage: 4 MG, DAILY
     Route: 045
     Dates: start: 2007
  4. SUBUTEX [Suspect]
     Active Substance: BUPRENORPHINE HYDROCHLORIDE
     Dosage: 4 MG, DAILY
     Route: 060
     Dates: start: 2007

REACTIONS (6)
  - Drug withdrawal syndrome [Unknown]
  - Drug abuse [Unknown]
  - Intentional product use issue [Unknown]
  - Alcohol withdrawal syndrome [Unknown]
  - Drug dependence [Recovering/Resolving]
  - Drug diversion [Recovering/Resolving]

NARRATIVE: CASE EVENT DATE: 2007
